FAERS Safety Report 18750314 (Version 2)
Quarter: 2021Q1

REPORT INFORMATION
  Report Type: Report from Study
  Country: US (occurrence: US)
  Receive Date: 20210118
  Receipt Date: 20210120
  Transmission Date: 20210419
  Serious: Yes (Death)
  Sender: FDA-Public Use
  Company Number: US-TAIHO ONCOLOGY  INC-EU-2021-00123

PATIENT
  Age: 68 Year
  Sex: Male

DRUGS (11)
  1. LONSURF [Suspect]
     Active Substance: TIPIRACIL HYDROCHLORIDE\TRIFLURIDINE
     Indication: OESOPHAGEAL CARCINOMA
     Dosage: CYCLE UNKNOWN
     Route: 048
     Dates: start: 20201202, end: 20210110
  2. GABAPENTIN. [Concomitant]
     Active Substance: GABAPENTIN
  3. DOK [Concomitant]
     Active Substance: DOCUSATE SODIUM
  4. ONDANSETRON [Concomitant]
     Active Substance: ONDANSETRON
  5. METFORMIN [Concomitant]
     Active Substance: METFORMIN HYDROCHLORIDE
  6. MORPHINE [Concomitant]
     Active Substance: MORPHINE
  7. LEVETIRACETAM. [Concomitant]
     Active Substance: LEVETIRACETAM
  8. CICLOPIROX. [Concomitant]
     Active Substance: CICLOPIROX
  9. PANTOPRAZOLE [Concomitant]
     Active Substance: PANTOPRAZOLE
  10. ATORVASTATIN [Concomitant]
     Active Substance: ATORVASTATIN
  11. LORAZEPAM. [Concomitant]
     Active Substance: LORAZEPAM

REACTIONS (1)
  - Death [Fatal]

NARRATIVE: CASE EVENT DATE: 20210110
